FAERS Safety Report 7372839-4 (Version None)
Quarter: 2011Q1

REPORT INFORMATION
  Report Type: 
  Country: None (occurrence: None)
  Receive Date: 20110324
  Receipt Date: 20110322
  Transmission Date: 20110831
  Serious: Yes (Life-Threatening, Hospitalization)
  Sender: FDA-Public Use
  Company Number: CA-PFIZER INC-2011063119

PATIENT
  Age: 16 Year
  Sex: Female
  Weight: 56.689 kg

DRUGS (2)
  1. APO-CLINDAMYCIN [Suspect]
     Dosage: 300 MG, 4X/DAY FOR 7 DAYS
     Route: 048
  2. ADVIL LIQUI-GELS [Suspect]
     Dosage: 200 MG, UNK

REACTIONS (14)
  - BLOOD PRESSURE DECREASED [None]
  - SKIN EXFOLIATION [None]
  - SYNCOPE [None]
  - ERYTHEMA [None]
  - NIKOLSKY'S SIGN [None]
  - TOXIC EPIDERMAL NECROLYSIS [None]
  - BLISTER [None]
  - LIP SWELLING [None]
  - PYREXIA [None]
  - RASH MACULAR [None]
  - RASH PUSTULAR [None]
  - ALOPECIA [None]
  - SWELLING FACE [None]
  - TACHYCARDIA [None]
